FAERS Safety Report 15857482 (Version 1)
Quarter: 2019Q1

REPORT INFORMATION
  Report Type: Report from Study
  Country: US (occurrence: US)
  Receive Date: 20190123
  Receipt Date: 20190123
  Transmission Date: 20190417
  Serious: Yes (Other)
  Sender: FDA-Public Use
  Company Number: US-ROCHE-2056829

PATIENT
  Sex: Male
  Weight: 57.6 kg

DRUGS (8)
  1. NUTROPIN AQ [Suspect]
     Active Substance: SOMATROPIN
     Indication: GROWTH HORMONE DEFICIENCY
     Route: 058
  2. NUTROPIN AQ [Suspect]
     Active Substance: SOMATROPIN
     Route: 058
     Dates: start: 20170216
  3. NUTROPIN AQ [Suspect]
     Active Substance: SOMATROPIN
     Route: 058
     Dates: start: 20170907
  4. VITAMIN B12 [Concomitant]
     Active Substance: CYANOCOBALAMIN
  5. NUTROPIN AQ [Suspect]
     Active Substance: SOMATROPIN
     Dosage: 6 INJECTIONS PER WEEK, NUPSIN 20, 0.2 MG DOSING INCREMENTS, 6 INJECTIONS PER WEEK, DISPENSED 1 MONTH
     Route: 058
  6. NUTROPIN AQ [Suspect]
     Active Substance: SOMATROPIN
     Route: 058
  7. STRATTERA [Concomitant]
     Active Substance: ATOMOXETINE HYDROCHLORIDE
     Indication: ATTENTION DEFICIT/HYPERACTIVITY DISORDER
     Dosage: 25 MG IN THE MORNING AND 40 MG IN THE NIGHT
     Route: 048
  8. NUTROPIN AQ [Suspect]
     Active Substance: SOMATROPIN
     Route: 058

REACTIONS (5)
  - Appendicitis [Recovered/Resolved]
  - Bone fragmentation [Not Recovered/Not Resolved]
  - Blood thyroid stimulating hormone increased [Unknown]
  - Arthropathy [Unknown]
  - Dyspnoea [Recovered/Resolved]
